FAERS Safety Report 20389768 (Version 1)
Quarter: 2022Q1

REPORT INFORMATION
  Report Type: Spontaneous
  Country: US (occurrence: US)
  Receive Date: 20220128
  Receipt Date: 20220128
  Transmission Date: 20220423
  Serious: No
  Sender: FDA-Public Use
  Company Number: US-ALLERGAN-2118374US

PATIENT

DRUGS (2)
  1. BOTOX [Suspect]
     Active Substance: ONABOTULINUMTOXINA
     Indication: Product used for unknown indication
     Dosage: UNK UNK, SINGLE
     Dates: start: 20210326, end: 20210326
  2. COLLAGEN\METHYL METHACRYLATE [Suspect]
     Active Substance: COLLAGEN\METHYL METHACRYLATE
     Indication: Product used for unknown indication
     Dosage: UNK

REACTIONS (1)
  - Adverse event [Unknown]
